FAERS Safety Report 4875335-9 (Version None)
Quarter: 2006Q1

REPORT INFORMATION
  Report Type: 
  Country: None (occurrence: None)
  Receive Date: 20060109
  Receipt Date: 20051213
  Transmission Date: 20060701
  Serious: Yes (Hospitalization)
  Sender: FDA-Public Use
  Company Number: US-MERCK-0512USA02115

PATIENT
  Age: 45 Year
  Sex: Male
  Weight: 198 kg

DRUGS (8)
  1. VIOXX [Suspect]
     Indication: OSTEOARTHRITIS
     Route: 048
     Dates: start: 20010801, end: 20041001
  2. VIOXX [Suspect]
     Route: 048
     Dates: start: 20010801, end: 20041001
  3. NORVASC [Concomitant]
     Route: 065
  4. [THERAPY UNSPECIFIED] [Concomitant]
     Route: 065
  5. PAXIL [Concomitant]
     Route: 065
  6. XANAX [Concomitant]
     Route: 065
  7. HUMIBID [Concomitant]
     Route: 065
  8. IBUPROFEN [Concomitant]
     Route: 065

REACTIONS (2)
  - MYOCARDIAL INFARCTION [None]
  - RESPIRATORY DISTRESS [None]
